FAERS Safety Report 23486554 (Version 1)
Quarter: 2024Q1

REPORT INFORMATION
  Report Type: Spontaneous
  Country: JP (occurrence: JP)
  Receive Date: 20240206
  Receipt Date: 20240206
  Transmission Date: 20240410
  Serious: Yes (Hospitalization)
  Sender: FDA-Public Use
  Company Number: JP-DSJP-DSJ-2023-126110

PATIENT

DRUGS (28)
  1. DENOSUMAB [Suspect]
     Active Substance: DENOSUMAB
     Indication: Metastases to bone
     Dosage: UNK
     Route: 065
     Dates: start: 20160912, end: 20230627
  2. ENHERTU [Suspect]
     Active Substance: FAM-TRASTUZUMAB DERUXTECAN-NXKI
     Indication: HER2 positive breast cancer
     Dosage: 5.4 MILLIGRAM/KILOGRAM, Q3WK
     Route: 041
     Dates: start: 20221110, end: 20221110
  3. ENHERTU [Suspect]
     Active Substance: FAM-TRASTUZUMAB DERUXTECAN-NXKI
     Dosage: 5.4 MILLIGRAM/KILOGRAM, Q3WK
     Route: 041
     Dates: start: 20221202, end: 20221202
  4. TYKERB [Suspect]
     Active Substance: LAPATINIB DITOSYLATE
     Indication: HER2 positive breast cancer
     Dosage: UNK
     Route: 048
     Dates: start: 20230127, end: 202302
  5. CAPECITABINE [Suspect]
     Active Substance: CAPECITABINE
     Indication: HER2 positive breast cancer
     Dosage: UNK
     Route: 048
     Dates: start: 20230127, end: 202302
  6. CAPECITABINE [Suspect]
     Active Substance: CAPECITABINE
     Dosage: UNK, DRUG INTERRUPTION DURING IRRADIATION
     Route: 048
     Dates: start: 20230217, end: 20230421
  7. XELODA [Suspect]
     Active Substance: CAPECITABINE
     Indication: HER2 positive breast cancer
     Dosage: 2400MG/DAY
     Route: 065
     Dates: start: 20200508, end: 20210730
  8. KADCYLA [Suspect]
     Active Substance: ADO-TRASTUZUMAB EMTANSINE
     Indication: HER2 positive breast cancer
     Dosage: UNK UNK, ONCE EVERY 3 WK
     Route: 065
     Dates: start: 20220412, end: 20220930
  9. BEVACIZUMAB [Concomitant]
     Active Substance: BEVACIZUMAB
     Dosage: UNK
     Route: 065
     Dates: start: 20230517, end: 20231031
  10. ZOLEDRONIC ACID [Concomitant]
     Active Substance: ZOLEDRONIC ACID
     Indication: Metastases to bone
     Dosage: 4 MILLIGRAM, QD
     Route: 042
     Dates: start: 20221111, end: 20221111
  11. CALONAL [Concomitant]
     Active Substance: ACETAMINOPHEN
     Indication: Cancer pain
     Dosage: 2000MG/DAY, QID
     Route: 048
     Dates: start: 20221109
  12. Oxinorm [Concomitant]
     Indication: Cancer pain
     Dosage: UNK UNK, AS NEEDED
     Route: 048
     Dates: start: 20221109
  13. DOMPERIDONE [Concomitant]
     Active Substance: DOMPERIDONE
     Indication: Nausea
     Dosage: UNK UNK, AS NEEDED
     Route: 048
     Dates: start: 20221109
  14. DOMPERIDONE [Concomitant]
     Active Substance: DOMPERIDONE
     Indication: Vomiting
     Dosage: UNK UNK, UNK
  15. NEXIUM [Concomitant]
     Active Substance: ESOMEPRAZOLE MAGNESIUM
     Indication: Gastritis
     Dosage: 10 MILLIGRAM, QD
     Route: 048
     Dates: start: 20221109, end: 20221111
  16. CALCIUM CARBONATE\CHOLECALCIFEROL\MAGNESIUM CARBONATE [Concomitant]
     Active Substance: CALCIUM CARBONATE\CHOLECALCIFEROL\MAGNESIUM CARBONATE
     Dosage: UNK
     Route: 065
     Dates: end: 20230627
  17. HERCEPTIN [Concomitant]
     Active Substance: TRASTUZUMAB
     Dosage: UNK UNK, ONCE EVERY 3 WK
     Route: 065
     Dates: start: 20160419, end: 20160719
  18. HERCEPTIN [Concomitant]
     Active Substance: TRASTUZUMAB
     Dosage: UNK UNK, ONCE EVERY 3 WK
     Route: 065
     Dates: start: 20161114, end: 20171023
  19. HERCEPTIN [Concomitant]
     Active Substance: TRASTUZUMAB
     Dosage: UNK UNK, ONCE EVERY 3 WK
     Route: 065
     Dates: start: 20190508
  20. HERCEPTIN [Concomitant]
     Active Substance: TRASTUZUMAB
     Dosage: UNK UNK, ONCE EVERY 3 WK
     Route: 065
     Dates: start: 20190717, end: 20200417
  21. HERCEPTIN [Concomitant]
     Active Substance: TRASTUZUMAB
     Dosage: UNK UNK, ONCE EVERY 3 WK
     Route: 065
     Dates: start: 20230217, end: 20230421
  22. PERJETA [Concomitant]
     Active Substance: PERTUZUMAB
     Dosage: UNK UNK, ONCE EVERY 3 WK
     Route: 065
     Dates: start: 20190508
  23. PERJETA [Concomitant]
     Active Substance: PERTUZUMAB
     Dosage: UNK UNK, ONCE EVERY 3 WK
     Route: 065
     Dates: start: 20190717, end: 20200417
  24. HALAVEN [Concomitant]
     Active Substance: ERIBULIN MESYLATE
     Dosage: UNK UNK, ONCE EVERY 3 WK
     Dates: start: 20190508, end: 20190807
  25. FEMARA [Concomitant]
     Active Substance: LETROZOLE
     Dosage: 2.5MG/DAY
     Route: 065
     Dates: start: 20191004, end: 20200417
  26. FASLODEX [Concomitant]
     Active Substance: FULVESTRANT
     Dosage: UNK UNK, ONCE EVERY 4 WK
     Route: 065
     Dates: start: 20211005, end: 20220322
  27. ABRAXANE [Concomitant]
     Active Substance: PACLITAXEL
     Dosage: UNK
     Route: 065
     Dates: start: 20230517, end: 20231031
  28. TAMOXIFEN [Concomitant]
     Active Substance: TAMOXIFEN
     Dosage: 20MG/DAY
     Route: 065
     Dates: start: 20160907, end: 20190419

REACTIONS (12)
  - Pain in jaw [Unknown]
  - Interstitial lung disease [Recovered/Resolved]
  - Erythema [Unknown]
  - Erythema [Unknown]
  - Erythema [Unknown]
  - Abdominal pain [Unknown]
  - Nausea [Unknown]
  - Malaise [Unknown]
  - Neuropathy peripheral [Unknown]
  - Palmar-plantar erythrodysaesthesia syndrome [Unknown]
  - Diarrhoea [Unknown]
  - Alopecia [Unknown]

NARRATIVE: CASE EVENT DATE: 20220101
